FAERS Safety Report 20736002 (Version 1)
Quarter: 2022Q2

REPORT INFORMATION
  Report Type: Spontaneous
  Country: US (occurrence: US)
  Receive Date: 20220421
  Receipt Date: 20220421
  Transmission Date: 20220720
  Serious: Yes (Death)
  Sender: FDA-Public Use
  Company Number: US-COHERUS BIOSCIENCES, INC - 2022-COH-US000012

PATIENT

DRUGS (1)
  1. UDENYCA [Suspect]
     Active Substance: PEGFILGRASTIM-CBQV
     Indication: Ovarian cancer
     Dosage: UNK, EVERY 21 DAYS
     Dates: start: 202110

REACTIONS (1)
  - Ovarian cancer [Fatal]
